FAERS Safety Report 4469873-0 (Version None)
Quarter: 2004Q3

REPORT INFORMATION
  Report Type: 
  Country: None (occurrence: None)
  Receive Date: 20040917
  Receipt Date: 20040608
  Transmission Date: 20050211
  Serious: No
  Sender: FDA-Public Use
  Company Number: US-JNJFOC-20040603093

PATIENT
  Age: 34 Year
  Sex: Female
  Weight: 56.6996 kg

DRUGS (3)
  1. ORTHO EVRA [Suspect]
     Indication: CONTRACEPTION
     Dosage: 1 DOSE(S), 3 IN 4 WEEK, TRANSDERMAL
     Route: 062
     Dates: start: 20040606
  2. ORAL CONTRACEPTIVE NOS (ORAL CONTRACEPTIVES NOS) [Suspect]
     Indication: DRUG USE FOR UNKNOWN INDICATION
  3. ZITHROMAX [Concomitant]

REACTIONS (2)
  - NAUSEA [None]
  - VOMITING [None]
